FAERS Safety Report 8976718 (Version 1)
Quarter: 2012Q4

REPORT INFORMATION
  Report Type: 
  Country: US (occurrence: US)
  Receive Date: 20121219
  Receipt Date: 20121219
  Transmission Date: 20130627
  Serious: No
  Sender: FDA-Public Use
  Company Number: US-AMGEN-USASP2012059935

PATIENT
  Age: 77 Year
  Sex: Female

DRUGS (14)
  1. PROLIA [Suspect]
     Indication: OSTEOPOROSIS POSTMENOPAUSAL
     Dosage: UNK UNK, q6mo
     Dates: start: 20111018
  2. CALCIUM CITRATE [Concomitant]
  3. VITAMIN D /00107901/ [Concomitant]
  4. AMILORIDE [Concomitant]
  5. PLAVIX [Concomitant]
     Dosage: UNK UNK, qwk
  6. POTASSIUM [Concomitant]
  7. PULMICORT [Concomitant]
  8. DEXILANT [Concomitant]
     Dosage: UNK UNK, qd
  9. FLUTICASONE [Concomitant]
     Dosage: UNK UNK, qd
  10. PROBIOTIC                          /06395501/ [Concomitant]
  11. PHAZYME                            /00164001/ [Concomitant]
  12. CARAFATE [Concomitant]
     Dosage: 1 g, UNK
  13. HYOSCYAMINE [Concomitant]
     Dosage: 0.125 mg, qd
  14. IRON [Concomitant]

REACTIONS (10)
  - Urinary tract infection [Not Recovered/Not Resolved]
  - Rash macular [Unknown]
  - Adverse event [Unknown]
  - Oral herpes [Not Recovered/Not Resolved]
  - Cheilitis [Not Recovered/Not Resolved]
  - Pyrexia [Not Recovered/Not Resolved]
  - Chills [Not Recovered/Not Resolved]
  - Abdominal pain [Not Recovered/Not Resolved]
  - Cellulitis [Not Recovered/Not Resolved]
  - Pain in extremity [Not Recovered/Not Resolved]
